FAERS Safety Report 6945711-9 (Version None)
Quarter: 2010Q3

REPORT INFORMATION
  Report Type: 
  Country: None (occurrence: None)
  Receive Date: 20100827
  Receipt Date: 20100820
  Transmission Date: 20110219
  Serious: Yes (Other)
  Sender: FDA-Public Use
  Company Number: A0797798A

PATIENT
  Age: 26 Year
  Sex: Female

DRUGS (1)
  1. AVANDIA [Suspect]
     Indication: DIABETES MELLITUS
     Dosage: 8MG TWICE PER DAY
     Route: 048

REACTIONS (5)
  - AMNESIA [None]
  - ANAEMIA [None]
  - FRACTURE [None]
  - MACULAR OEDEMA [None]
  - WEIGHT INCREASED [None]
